FAERS Safety Report 21462614 (Version 1)
Quarter: 2022Q4

REPORT INFORMATION
  Report Type: Spontaneous
  Country: DE (occurrence: DE)
  Receive Date: 20221016
  Receipt Date: 20221016
  Transmission Date: 20230113
  Serious: Yes (Other)
  Sender: FDA-Public Use
  Company Number: DE-BRISTOL-MYERS SQUIBB COMPANY-2022-121648

PATIENT
  Age: 61 Year
  Sex: Female

DRUGS (2)
  1. OPDIVO [Suspect]
     Active Substance: NIVOLUMAB
     Indication: Malignant melanoma
     Dosage: DOSE: UNAVAILABLE; FREQ: UNAVAILABLE
     Route: 065
  2. YERVOY [Suspect]
     Active Substance: IPILIMUMAB
     Indication: Malignant melanoma
     Dosage: DOSE: UNAVAILABLE; FREQ: UNAVAILABLE
     Route: 065

REACTIONS (1)
  - Immune-mediated enterocolitis [Unknown]
